FAERS Safety Report 13699221 (Version 1)
Quarter: 2017Q2

REPORT INFORMATION
  Report Type: Report from Study
  Country: US (occurrence: US)
  Receive Date: 20170628
  Receipt Date: 20170628
  Transmission Date: 20170830
  Serious: Yes (Other)
  Sender: FDA-Public Use
  Company Number: US-JAZZ-2017-US-007352

PATIENT
  Sex: Female

DRUGS (11)
  1. XYREM [Suspect]
     Active Substance: SODIUM OXYBATE
     Dosage: DOSE ADJUSTMENTS
     Route: 048
     Dates: start: 2007, end: 201606
  2. PROVIGIL [Concomitant]
     Active Substance: MODAFINIL
  3. NUVIGIL [Concomitant]
     Active Substance: ARMODAFINIL
  4. XYREM [Suspect]
     Active Substance: SODIUM OXYBATE
     Dosage: 3.5 G, QD SECOND DOSE
     Route: 048
     Dates: start: 201606, end: 2016
  5. ESTROGEL [Concomitant]
     Active Substance: ESTRADIOL
  6. XYREM [Suspect]
     Active Substance: SODIUM OXYBATE
     Dosage: 4.25 G, QD FIRST DOSE
     Route: 048
     Dates: start: 201606
  7. ARMOUR THYROID [Concomitant]
     Active Substance: THYROID, PORCINE
  8. MURO 128 [Concomitant]
     Active Substance: SODIUM CHLORIDE
  9. PROGESTERONE. [Concomitant]
     Active Substance: PROGESTERONE
  10. RESTASIS [Concomitant]
     Active Substance: CYCLOSPORINE
  11. XYREM [Suspect]
     Active Substance: SODIUM OXYBATE
     Indication: NARCOLEPSY
     Dosage: 2.25 G, BID
     Route: 048
     Dates: start: 200708, end: 2007

REACTIONS (4)
  - Hangover [Unknown]
  - Drug dose omission [Unknown]
  - Foot deformity [Unknown]
  - Somnolence [Not Recovered/Not Resolved]
